FAERS Safety Report 18623222 (Version 1)
Quarter: 2020Q4

REPORT INFORMATION
  Report Type: Report from Study
  Country: US (occurrence: US)
  Receive Date: 20201216
  Receipt Date: 20201216
  Transmission Date: 20210114
  Serious: Yes (Other)
  Sender: FDA-Public Use
  Company Number: US-GILEAD-2020-0508908

PATIENT
  Sex: Female

DRUGS (21)
  1. MILK OF MAGNESIA [Concomitant]
     Active Substance: MAGNESIUM HYDROXIDE
  2. URSODIOL. [Concomitant]
     Active Substance: URSODIOL
  3. LANTUS [Concomitant]
     Active Substance: INSULIN GLARGINE
  4. MIRALAX [Concomitant]
     Active Substance: POLYETHYLENE GLYCOL 3350
  5. MAGNESIUM [Concomitant]
     Active Substance: MAGNESIUM
  6. PROLIA [Concomitant]
     Active Substance: DENOSUMAB
  7. ZITHROMAX [Concomitant]
     Active Substance: AZITHROMYCIN DIHYDRATE
  8. TRIKAFTA [Concomitant]
     Active Substance: ELEXACAFTOR\IVACAFTOR\TEZACAFTOR
  9. PROAIR HFA [Concomitant]
     Active Substance: ALBUTEROL SULFATE
  10. AZTREONAM LYSINE [Suspect]
     Active Substance: AZTREONAM LYSINE
     Indication: CYSTIC FIBROSIS
     Dosage: 75 MG, TID, 28 DAYS ON, 28 DAYS OFF
     Route: 055
  11. SINGULAIR [Concomitant]
     Active Substance: MONTELUKAST SODIUM
  12. ZENPEP [Concomitant]
     Active Substance: PANCRELIPASE AMYLASE\PANCRELIPASE LIPASE\PANCRELIPASE PROTEASE
  13. SERTRALINE HYDROCHLORIDE. [Concomitant]
     Active Substance: SERTRALINE HYDROCHLORIDE
  14. ADVAIR HFA [Concomitant]
     Active Substance: FLUTICASONE PROPIONATE\SALMETEROL XINAFOATE
  15. OMEPRAZOLE. [Concomitant]
     Active Substance: OMEPRAZOLE
  16. VITAMIN D NOS [Concomitant]
     Active Substance: VITAMIN D NOS
  17. PULMOZYME [Concomitant]
     Active Substance: DORNASE ALFA
  18. TRAZODONE HYDROCHLORIDE. [Concomitant]
     Active Substance: TRAZODONE HYDROCHLORIDE
  19. STOOL SOFTENER (DOCUSATE) [Concomitant]
     Active Substance: DOCUSATE
  20. SYMBICORT [Concomitant]
     Active Substance: BUDESONIDE\FORMOTEROL FUMARATE DIHYDRATE
  21. LORATADINE D [Concomitant]
     Active Substance: LORATADINE\PSEUDOEPHEDRINE SULFATE

REACTIONS (2)
  - Mammoplasty [Unknown]
  - Postoperative wound infection [Unknown]
